FAERS Safety Report 7227719-1 (Version None)
Quarter: 2011Q1

REPORT INFORMATION
  Report Type: 
  Country: None (occurrence: None)
  Receive Date: 20110114
  Receipt Date: 20110107
  Transmission Date: 20110831
  Serious: Yes (Other)
  Sender: FDA-Public Use
  Company Number: US-US-EMD SERONO, INC.-230653J10USA

PATIENT
  Sex: Female
  Weight: 80 kg

DRUGS (6)
  1. CYMBALTA [Concomitant]
     Indication: ANXIETY
     Route: 048
     Dates: start: 20091229
  2. ALPRAZOLAM [Concomitant]
     Indication: ANXIETY
     Route: 048
     Dates: start: 20070810
  3. REBIF [Suspect]
     Route: 058
     Dates: start: 20090101, end: 20090101
  4. REBIF [Suspect]
     Route: 058
     Dates: start: 20091221, end: 20100808
  5. OXYCONTIN [Concomitant]
     Indication: PAIN
     Dates: start: 20091020
  6. REBIF [Suspect]
     Indication: MULTIPLE SCLEROSIS
     Route: 058
     Dates: start: 20091124, end: 20090101

REACTIONS (2)
  - MENISCUS LESION [None]
  - FALL [None]
